FAERS Safety Report 7675225-2 (Version None)
Quarter: 2011Q3

REPORT INFORMATION
  Report Type: 
  Country: None (occurrence: None)
  Receive Date: 20110810
  Receipt Date: 20110810
  Transmission Date: 20111222
  Serious: Yes (Hospitalization)
  Sender: FDA-Public Use
  Company Number: None

PATIENT
  Age: 34 Year
  Sex: Female
  Weight: 53.523 kg

DRUGS (1)
  1. BUTALBITAL ACETAMINOPHEN AND CAFFEINE [Suspect]
     Indication: HEADACHE
     Dosage: 1 TAB EVERY 4 HOURS
     Route: 048
     Dates: start: 20110731, end: 20110807

REACTIONS (6)
  - PHARYNGEAL OEDEMA [None]
  - SWELLING FACE [None]
  - RASH PRURITIC [None]
  - DYSPNOEA [None]
  - SWOLLEN TONGUE [None]
  - ERYTHEMA [None]
